FAERS Safety Report 16051130 (Version 1)
Quarter: 2019Q1

REPORT INFORMATION
  Report Type: Report from Study
  Country: ZA (occurrence: ZA)
  Receive Date: 20190308
  Receipt Date: 20190308
  Transmission Date: 20190418
  Serious: Yes (Death)
  Sender: FDA-Public Use
  Company Number: PHHY2019ZA051906

PATIENT
  Sex: Male

DRUGS (1)
  1. CO-ZOMEVEK [Suspect]
     Active Substance: HYDROCHLOROTHIAZIDE\VALSARTAN
     Indication: HYPERTENSION
     Dosage: (HYDROCHOROTHIAZIDE 12.5 MG AND VALSARTAN 160 MG)
     Route: 048
     Dates: start: 201809, end: 201902

REACTIONS (1)
  - Death [Fatal]
